FAERS Safety Report 7298106-5 (Version None)
Quarter: 2011Q1

REPORT INFORMATION
  Report Type: 
  Country: None (occurrence: None)
  Receive Date: 20110217
  Receipt Date: 20110209
  Transmission Date: 20110831
  Serious: Yes (Other)
  Sender: FDA-Public Use
  Company Number: CA-JNJFOC-20110203591

PATIENT
  Sex: Female
  Weight: 89 kg

DRUGS (11)
  1. METHOTREXATE SODIUM [Concomitant]
     Route: 065
  2. REMICADE [Suspect]
     Indication: RHEUMATOID ARTHRITIS
     Dosage: HAS HAD AT LEAST 24 DOSES OF INFLIXIMAB
     Route: 042
  3. VENTOLIN [Concomitant]
     Route: 065
  4. ALTACE [Concomitant]
     Route: 065
  5. TYLENOL [Concomitant]
     Route: 065
  6. FOLIC ACID [Concomitant]
     Route: 065
  7. REMICADE [Suspect]
     Route: 042
  8. IMURAN [Concomitant]
     Route: 065
  9. CITALOPRAM [Concomitant]
     Route: 065
  10. UNKNOWN MEDICATION [Concomitant]
     Route: 065
  11. RANITIDINE [Concomitant]
     Route: 065

REACTIONS (1)
  - EMPHYSEMA [None]
